FAERS Safety Report 10044407 (Version 1)
Quarter: 2014Q1

REPORT INFORMATION
  Report Type: Spontaneous
  Country: JP (occurrence: None)
  Receive Date: 20140326
  Receipt Date: 20140326
  Transmission Date: 20141002
  Serious: Yes (Other)
  Sender: FDA-Public Use
  Company Number: KAD201403-000361

PATIENT
  Age: 57 Year
  Sex: Female

DRUGS (5)
  1. ANASTROZOLE (ANASTROZOLE) [Suspect]
     Indication: BREAST CANCER
  2. TAMOXIFEN [Suspect]
     Indication: BREAST CANCER
  3. FULVESTRANT [Suspect]
  4. DOCETAXEL (DOCETAXEL) [Suspect]
     Indication: BREAST CANCER
  5. CYCLOPHOSPHAMIDE (CYCLOPHOSPHAMIDE) [Suspect]
     Indication: BREAST CANCER

REACTIONS (3)
  - Breast cancer metastatic [None]
  - Musculoskeletal stiffness [None]
  - Malignant neoplasm progression [None]
